FAERS Safety Report 5025464-4 (Version None)
Quarter: 2006Q2

REPORT INFORMATION
  Report Type: 
  Country: None (occurrence: None)
  Receive Date: 20060608
  Receipt Date: 20060524
  Transmission Date: 20061013
  Serious: Yes (Death, Hospitalization, Other)
  Sender: FDA-Public Use
  Company Number: 2006-DE-02679GD

PATIENT
  Age: 54 Year
  Sex: Male

DRUGS (6)
  1. PREDNISONE TAB [Suspect]
     Indication: IMMUNOSUPPRESSION
  2. ANTITHYMOCYTE GLOBULIN (ANTITHYMOCYTE IMMUNOGLOBULIN) [Suspect]
     Indication: IMMUNOSUPPRESSION
  3. TACROLIMUS (TACROLIMUS) [Suspect]
     Indication: IMMUNOSUPPRESSION
  4. MYCOPHENOLATE MOFETIL [Suspect]
     Indication: IMMUNOSUPPRESSION
  5. TRIMETHOPRIM-SULFAMETHOXAZOLE (INFECTRIN) [Concomitant]
  6. VALGANCICLOVIR HCL [Concomitant]

REACTIONS (15)
  - ABDOMINAL PAIN LOWER [None]
  - BRAIN OEDEMA [None]
  - CARDIAC ARREST [None]
  - CHORIOMENINGITIS LYMPHOCYTIC [None]
  - COMPLICATIONS OF TRANSPLANT SURGERY [None]
  - CORONARY ARTERY DISEASE [None]
  - DIARRHOEA [None]
  - ERYTHEMA [None]
  - HEPATIC NECROSIS [None]
  - HEPATITIS [None]
  - INDIRECT INFECTION TRANSMISSION [None]
  - LETHARGY [None]
  - MENTAL STATUS CHANGES [None]
  - PLATELET COUNT DECREASED [None]
  - PROTHROMBIN TIME PROLONGED [None]
